FAERS Safety Report 5126757-2 (Version None)
Quarter: 2006Q4

REPORT INFORMATION
  Report Type: 
  Country: None (occurrence: None)
  Receive Date: 20061013
  Receipt Date: 20060810
  Transmission Date: 20070319
  Serious: Yes (Disabling, Other)
  Sender: FDA-Public Use
  Company Number: US-PURDUE-USA_2006_0024902

PATIENT
  Age: 23 Year
  Sex: Female

DRUGS (1)
  1. OXYCONTIN [Suspect]
     Indication: DRUG ABUSER
     Dosage: UNK, UNK
     Route: 055

REACTIONS (4)
  - ABNORMAL SLEEP-RELATED EVENT [None]
  - ACTIVITIES OF DAILY LIVING IMPAIRED [None]
  - DRUG ABUSER [None]
  - DRUG DEPENDENCE [None]
